FAERS Safety Report 22659905 (Version 1)
Quarter: 2023Q2

REPORT INFORMATION
  Report Type: Spontaneous
  Country: GB (occurrence: GB)
  Receive Date: 20230630
  Receipt Date: 20230630
  Transmission Date: 20230721
  Serious: Yes (Other)
  Sender: FDA-Public Use
  Company Number: None

PATIENT
  Age: 68 Year
  Sex: Female
  Weight: 67 kg

DRUGS (11)
  1. AMLODIPINE [Suspect]
     Active Substance: AMLODIPINE BESYLATE
     Indication: Product used for unknown indication
     Dosage: UNIT DOSE: 5MG
     Route: 048
     Dates: start: 20230615
  2. COCODAMOL [Concomitant]
     Active Substance: ACETAMINOPHEN\CODEINE PHOSPHATE
     Indication: Product used for unknown indication
     Dosage: 1-2 PO UP TO TO BE TAKEN FOUR TIMES DAILY
     Dates: start: 20230606
  3. DEXAMETHASONE [Concomitant]
     Active Substance: DEXAMETHASONE
     Indication: Product used for unknown indication
     Dosage: 2 GTT DAILY; BOTH EARS. DO NOT USE THIS IF YOU THINK YOUR EARS ARE INFECTED, UNIT DOSE: 1GTT, FREQUE
     Dates: start: 20230525, end: 20230604
  4. DOXAZOSIN [Concomitant]
     Active Substance: DOXAZOSIN MESYLATE
     Indication: Product used for unknown indication
     Dosage: 1 DOSAGE FORMS DAILY; UNIT DOSE: 1DF, FREQUENCY: ONCE DAILY
     Dates: start: 20230615
  5. FELODIPINE [Concomitant]
     Active Substance: FELODIPINE
     Indication: Product used for unknown indication
     Dosage: 1 DOSAGE FORMS DAILY; UNIT DOSE: 1DF, FREQUENCY: ONCE DAILY, DURATION: 154 DAYS
     Dates: start: 20230112, end: 20230615
  6. FLUMETHASONE PIVALATE [Concomitant]
     Active Substance: FLUMETHASONE PIVALATE
     Indication: Product used for unknown indication
     Dosage: 4 GTT DAILY; UNIT DOSE: 2GTT, FREQUENCY: TWICE DAILY, DURATION: 5 DAYS
     Dates: start: 20230502, end: 20230507
  7. LANSOPRAZOLE [Concomitant]
     Active Substance: LANSOPRAZOLE
     Indication: Product used for unknown indication
     Dosage: 1 DOSAGE FORMS DAILY; UNIT DOSE: 1DF, FREQUENCY: ONCE DAILY
     Dates: start: 20230427
  8. POLYETHYLENE GLYCOLS [Concomitant]
     Active Substance: POLYETHYLENE GLYCOLS
     Indication: Product used for unknown indication
     Dates: start: 20221122
  9. METRONIDAZOLE [Concomitant]
     Active Substance: METRONIDAZOLE
     Indication: Product used for unknown indication
     Dosage: 2 DOSAGE FORMS DAILY; UNIT DOSE: 1DF, FREQUENCY: TWICE DAILY
     Dates: start: 20220516
  10. OTOMIZE [Concomitant]
     Indication: Product used for unknown indication
     Dosage: 6 DOSAGE FORMS DAILY; UNIT DOSE: 2 DF, FREQUENCY: THRICE DAILY, DURATION:5 DAYS
     Dates: start: 20230525, end: 20230530
  11. ACETAMINOPHEN\CODEINE PHOSPHATE [Concomitant]
     Active Substance: ACETAMINOPHEN\CODEINE PHOSPHATE
     Indication: Product used for unknown indication
     Dosage: 1-2 PO UP TO TO BE TAKEN FOUR TIMES DAILY, DURATION: 8 DAYS
     Dates: start: 20230411, end: 20230419

REACTIONS (1)
  - Joint swelling [Recovering/Resolving]

NARRATIVE: CASE EVENT DATE: 20230615
